FAERS Safety Report 8250517-7 (Version None)
Quarter: 2012Q2

REPORT INFORMATION
  Report Type: 
  Country: None (occurrence: None)
  Receive Date: 20120402
  Receipt Date: 20120402
  Transmission Date: 20120825
  Serious: Yes (Other)
  Sender: FDA-Public Use
  Company Number: None

PATIENT
  Age: 59 Year
  Sex: Female
  Weight: 99.79 kg

DRUGS (2)
  1. NUCYNTA [Concomitant]
     Indication: PAIN
     Dosage: 1
     Dates: start: 20120329, end: 20120330
  2. ALPRAZOLAM [Suspect]
     Indication: NERVOUS SYSTEM DISORDER
     Dates: start: 20120329, end: 20120330

REACTIONS (3)
  - THROAT TIGHTNESS [None]
  - URTICARIA [None]
  - COUGH [None]
